FAERS Safety Report 22211469 (Version 2)
Quarter: 2023Q2

REPORT INFORMATION
  Report Type: Spontaneous
  Country: US (occurrence: US)
  Receive Date: 20230414
  Receipt Date: 20230502
  Transmission Date: 20230722
  Serious: No
  Sender: FDA-Public Use
  Company Number: US-LEO Pharma-351211

PATIENT
  Sex: Female

DRUGS (8)
  1. ADBRY [Suspect]
     Active Substance: TRALOKINUMAB-LDRM
     Indication: Dermatitis allergic
     Dosage: DOSAGE : 300 MG EVERY TWO WEEKS SUBCUTANEOUS
     Route: 058
     Dates: start: 202212
  2. ADBRY [Suspect]
     Active Substance: TRALOKINUMAB-LDRM
     Indication: Dermatitis allergic
     Dosage: DOSAGE : 300 MG EVERY TWO WEEKS SUBCUTANEOUS
     Route: 058
     Dates: start: 202212
  3. ADBRY [Suspect]
     Active Substance: TRALOKINUMAB-LDRM
     Indication: Dermatitis allergic
     Dosage: DOSAGE : 300 MG EVERY TWO WEEKS SUBCUTANEOUS
     Route: 058
     Dates: start: 202212
  4. ADBRY [Suspect]
     Active Substance: TRALOKINUMAB-LDRM
     Indication: Dermatitis allergic
     Dosage: DOSAGE : 300 MG EVERY TWO WEEKS SUBCUTANEOUS
     Route: 058
     Dates: start: 202212
  5. ADBRY [Suspect]
     Active Substance: TRALOKINUMAB-LDRM
     Indication: Dermatitis allergic
     Route: 058
  6. ADBRY [Suspect]
     Active Substance: TRALOKINUMAB-LDRM
     Indication: Dermatitis allergic
     Route: 058
  7. ADBRY [Suspect]
     Active Substance: TRALOKINUMAB-LDRM
     Indication: Dermatitis allergic
     Route: 058
  8. ADBRY [Suspect]
     Active Substance: TRALOKINUMAB-LDRM
     Indication: Dermatitis allergic
     Route: 058

REACTIONS (1)
  - Eye irritation [Not Recovered/Not Resolved]
